FAERS Safety Report 9460694 (Version 2)
Quarter: 2013Q4

REPORT INFORMATION
  Report Type: Spontaneous
  Country: FR (occurrence: None)
  Receive Date: 20130813
  Receipt Date: 20131127
  Transmission Date: 20140711
  Serious: Yes (Other)
  Sender: FDA-Public Use
  Company Number: 1837612

PATIENT
  Age: 51 Year
  Sex: Female

DRUGS (5)
  1. CARBOPLATIN [Suspect]
     Indication: OVARIAN CANCER RECURRENT
     Dosage: 1 CYCLICAL??(FIFTEENTH ADMINISTRATION)
     Route: 041
     Dates: start: 20130708, end: 20130708
  2. AVASTIN /00848101/) [Concomitant]
  3. ONDANSETRON [Concomitant]
  4. METHYLPREDNISOLONE [Concomitant]
  5. GEMCITABINE [Concomitant]

REACTIONS (4)
  - Hyperhidrosis [None]
  - Chills [None]
  - Rash macular [None]
  - Drug hypersensitivity [None]
